FAERS Safety Report 8802754 (Version 3)
Quarter: 2018Q4

REPORT INFORMATION
  Report Type: Spontaneous
  Country: FR (occurrence: FR)
  Receive Date: 20120921
  Receipt Date: 20181128
  Transmission Date: 20190205
  Serious: Yes (Hospitalization)
  Sender: FDA-Public Use
  Company Number: FR-009507513-1209FRA006244

PATIENT
  Age: 56 Year
  Sex: Female
  Weight: 71 kg

DRUGS (2)
  1. KARDEGIC [Suspect]
     Active Substance: ASPIRIN DL-LYSINE
     Indication: PRODUCT USED FOR UNKNOWN INDICATION
     Dosage: UNK
     Route: 048
  2. EZETROL [Suspect]
     Active Substance: EZETIMIBE
     Indication: PRODUCT USED FOR UNKNOWN INDICATION
     Dosage: UNK
     Route: 048
     Dates: start: 201202

REACTIONS (4)
  - Gingival bleeding [Unknown]
  - Haemoptysis [Unknown]
  - Thrombocytopenia [Unknown]
  - Spontaneous haematoma [Unknown]

NARRATIVE: CASE EVENT DATE: 20120810
